FAERS Safety Report 5459567-7 (Version None)
Quarter: 2007Q3

REPORT INFORMATION
  Report Type: 
  Country: None (occurrence: None)
  Receive Date: 20070919
  Receipt Date: 20070430
  Transmission Date: 20080115
  Serious: No
  Sender: FDA-Public Use
  Company Number: US-ASTRAZENECA-2007UW08945

PATIENT
  Age: 47 Year
  Sex: Female
  Weight: 86.4 kg

DRUGS (5)
  1. SEROQUEL [Suspect]
     Indication: BIPOLAR DISORDER
     Dates: start: 19991104, end: 20001114
  2. SEROQUEL [Suspect]
     Dates: start: 19991104, end: 20001114
  3. GEODON [Concomitant]
     Dates: start: 20020101
  4. TRILAFON [Concomitant]
  5. VALIUM [Concomitant]
     Dates: start: 19950101

REACTIONS (5)
  - BACK PAIN [None]
  - DIABETES MELLITUS [None]
  - OBESITY [None]
  - SENSITIVITY OF TEETH [None]
  - WEIGHT INCREASED [None]
